FAERS Safety Report 7620940-X (Version None)
Quarter: 2011Q3

REPORT INFORMATION
  Report Type: 
  Country: None (occurrence: None)
  Receive Date: 20110719
  Receipt Date: 20110714
  Transmission Date: 20111222
  Serious: Yes (Death)
  Sender: FDA-Public Use
  Company Number: US-MERCK-1106USA04351

PATIENT
  Age: 51 Year
  Sex: Male
  Weight: 50 kg

DRUGS (4)
  1. ALPRAZOLAM [Concomitant]
     Dosage: PRN
     Route: 048
     Dates: start: 20110524
  2. ACETAMINOPHEN AND HYDROCODONE BITARTRATE [Concomitant]
     Dosage: PRN
     Route: 048
     Dates: start: 20110524
  3. DOCUSATE SODIUM AND SENNOSIDES [Concomitant]
     Route: 048
     Dates: start: 20110301
  4. ZOLINZA [Suspect]
     Indication: METASTASES TO CENTRAL NERVOUS SYSTEM
     Route: 048
     Dates: start: 20110616, end: 20110627

REACTIONS (1)
  - DEATH [None]
